FAERS Safety Report 16005420 (Version 2)
Quarter: 2019Q1

REPORT INFORMATION
  Report Type: Report from Study
  Country: None (occurrence: US)
  Receive Date: 20190226
  Receipt Date: 20190328
  Transmission Date: 20190418
  Serious: Yes (Other)
  Sender: FDA-Public Use
  Company Number: US-ABBVIE-19K-163-2673724-00

PATIENT
  Age: 53 Year
  Sex: Female
  Weight: 113.5 kg

DRUGS (13)
  1. AZATHIOPRINE. [Concomitant]
     Active Substance: AZATHIOPRINE
     Indication: PRODUCT USED FOR UNKNOWN INDICATION
  2. HUMIRA [Suspect]
     Active Substance: ADALIMUMAB
     Indication: COLITIS ULCERATIVE
  3. HUMIRA [Suspect]
     Active Substance: ADALIMUMAB
     Indication: INFLAMMATORY BOWEL DISEASE
  4. PREDNISONE. [Suspect]
     Active Substance: PREDNISONE
     Route: 048
     Dates: start: 2007
  5. MESALAMINE. [Concomitant]
     Active Substance: MESALAMINE
     Indication: PRODUCT USED FOR UNKNOWN INDICATION
  6. PREDNISONE. [Suspect]
     Active Substance: PREDNISONE
     Route: 048
     Dates: end: 2014
  7. VENLAFAXINE [Concomitant]
     Active Substance: VENLAFAXINE HYDROCHLORIDE
     Indication: DEPRESSION
  8. HUMIRA [Suspect]
     Active Substance: ADALIMUMAB
     Indication: CROHN^S DISEASE
     Route: 058
     Dates: start: 201501, end: 201810
  9. PREDNISONE. [Suspect]
     Active Substance: PREDNISONE
     Route: 048
     Dates: start: 2007
  10. BUSPIRONE [Concomitant]
     Active Substance: BUSPIRONE HYDROCHLORIDE
     Indication: MENOPAUSAL SYMPTOMS
  11. DEXILANT [Concomitant]
     Active Substance: DEXLANSOPRAZOLE
     Indication: GASTROOESOPHAGEAL REFLUX DISEASE
  12. TURMERIC [Concomitant]
     Active Substance: HERBALS\TURMERIC
     Indication: ARTHROPATHY
  13. PREDNISONE. [Suspect]
     Active Substance: PREDNISONE
     Indication: COLITIS
     Route: 048
     Dates: start: 2007

REACTIONS (28)
  - Meniscus injury [Recovered/Resolved]
  - Rotator cuff syndrome [Recovered/Resolved]
  - Joint noise [Recovered/Resolved]
  - Ligament rupture [Not Recovered/Not Resolved]
  - Weight increased [Not Recovered/Not Resolved]
  - Trigger finger [Recovered/Resolved]
  - Carpal tunnel syndrome [Recovered/Resolved]
  - Knee operation [Unknown]
  - Joint swelling [Not Recovered/Not Resolved]
  - Fall [Unknown]
  - White blood cell count increased [Recovered/Resolved]
  - Peripheral swelling [Not Recovered/Not Resolved]
  - Meniscus injury [Recovered/Resolved]
  - White blood cell count increased [Unknown]
  - Diverticulum [Unknown]
  - Inappropriate schedule of product administration [Unknown]
  - Defaecation urgency [Unknown]
  - Exostosis [Recovered/Resolved]
  - Colitis [Unknown]
  - Hypoaesthesia [Recovered/Resolved]
  - Synovial rupture [Recovered/Resolved]
  - Tendon rupture [Not Recovered/Not Resolved]
  - Fall [Recovered/Resolved]
  - Fall [Recovered/Resolved]
  - Pain in extremity [Not Recovered/Not Resolved]
  - Synovial cyst [Recovered/Resolved]
  - Gastrointestinal pain [Unknown]
  - Arthritis [Unknown]

NARRATIVE: CASE EVENT DATE: 2015
